FAERS Safety Report 21620188 (Version 2)
Quarter: 2022Q4

REPORT INFORMATION
  Report Type: Report from Study
  Country: DE (occurrence: None)
  Receive Date: 20221121
  Receipt Date: 20221124
  Transmission Date: 20230113
  Serious: Yes (Hospitalization)
  Sender: FDA-Public Use
  Company Number: DE-ROCHE-3219483

PATIENT
  Age: 66 Year
  Sex: Female

DRUGS (8)
  1. ATEZOLIZUMAB [Suspect]
     Active Substance: ATEZOLIZUMAB
     Indication: Triple negative breast cancer
     Dosage: ON 07/JUN/2021, SHE RECEIVED MOST RECENT DOSE (1200 MG) OF ATEZOLIZUMAB PRIOR TO ADVERSE EVENT.
     Route: 041
  2. PACLITAXEL [Suspect]
     Active Substance: PACLITAXEL
     Indication: Triple negative breast cancer
     Dosage: ON 02/SEP/2020, SHE RECEIVED MOST RECENT DOSE (180 MG) OF PACLITAXEL PRIOR TO ADVERSE EVENT.
     Route: 042
  3. EPIRUBICIN [Suspect]
     Active Substance: EPIRUBICIN
     Indication: Triple negative breast cancer
     Dosage: ON 03/NOV/2020, SHE RECEIVED MOST RECENT DOSE (200 MG) OF EPIRUBICIN PRIOR TO ADVERSE EVENT.
     Route: 042
  4. CYCLOPHOSPHAMIDE [Suspect]
     Active Substance: CYCLOPHOSPHAMIDE
     Indication: Triple negative breast cancer
     Dosage: ON 03/NOV/2020, SHE RECEIVED MOST RECENT DOSE (1330 MG) OF CYCLOPHOSPHAMIDE PRIOR TO ADVERSE EVENT.
     Route: 042
  5. PEGFILGRASTIM [Suspect]
     Active Substance: PEGFILGRASTIM
     Indication: Triple negative breast cancer
     Dosage: CYCLE 4 VISIT 1
     Route: 058
     Dates: start: 20200821, end: 20200821
  6. PEGFILGRASTIM [Suspect]
     Active Substance: PEGFILGRASTIM
     Dosage: CYCLE 4 VISIT 2
     Route: 058
     Dates: start: 20200904, end: 20200904
  7. PEGFILGRASTIM [Suspect]
     Active Substance: PEGFILGRASTIM
     Dosage: CYCLE 5 VISIT 1
     Route: 058
     Dates: start: 20200918, end: 20200918
  8. PEGFILGRASTIM [Suspect]
     Active Substance: PEGFILGRASTIM
     Dosage: CYCLE 5 VISIT 2
     Route: 058
     Dates: start: 20201002, end: 20201002

REACTIONS (1)
  - Addison^s disease [Not Recovered/Not Resolved]

NARRATIVE: CASE EVENT DATE: 20220825
